FAERS Safety Report 23407583 (Version 2)
Quarter: 2024Q2

REPORT INFORMATION
  Report Type: Report from Study
  Country: BE (occurrence: BE)
  Receive Date: 20240117
  Receipt Date: 20240528
  Transmission Date: 20240716
  Serious: Yes (Hospitalization)
  Sender: FDA-Public Use
  Company Number: BE-ABBVIE-5587603

PATIENT
  Age: 65 Year
  Weight: 75 kg

DRUGS (27)
  1. UPADACITINIB [Suspect]
     Active Substance: UPADACITINIB
     Indication: Rheumatoid arthritis
     Dosage: 15 MILLIGRAM
     Route: 048
     Dates: start: 20220825, end: 20230120
  2. UPADACITINIB [Suspect]
     Active Substance: UPADACITINIB
     Indication: Rheumatoid arthritis
     Dosage: 15 MILLIGRAM
     Route: 048
     Dates: start: 20230204, end: 20231004
  3. UPADACITINIB [Suspect]
     Active Substance: UPADACITINIB
     Indication: Rheumatoid arthritis
     Dosage: 15 MILLIGRAM
     Route: 048
     Dates: start: 20231201
  4. UPADACITINIB [Suspect]
     Active Substance: UPADACITINIB
     Indication: Rheumatoid arthritis
     Dosage: 15 MILLIGRAM
     Route: 048
     Dates: start: 20211222, end: 20220811
  5. ESCITALOPRAM [Concomitant]
     Active Substance: ESCITALOPRAM OXALATE
     Indication: Depressed mood
     Dosage: 10 MILLIGRAM
     Route: 048
  6. Pantomed [Concomitant]
     Indication: Prophylaxis
     Dosage: 40 MILLIGRAM
     Route: 048
     Dates: end: 20230911
  7. Pantomed [Concomitant]
     Indication: Prophylaxis
     Route: 048
     Dates: start: 20230912
  8. PIROXICAM [Concomitant]
     Active Substance: PIROXICAM
     Indication: Rheumatoid arthritis
     Route: 048
     Dates: start: 202109
  9. FOLIC ACID [Concomitant]
     Active Substance: FOLIC ACID
     Indication: Prophylaxis
     Route: 048
     Dates: start: 20231201
  10. FOLIC ACID [Concomitant]
     Active Substance: FOLIC ACID
     Indication: Prophylaxis
     Route: 048
     Dates: end: 20231004
  11. METHOTREXATE [Concomitant]
     Active Substance: METHOTREXATE
     Indication: Rheumatoid arthritis
     Route: 048
     Dates: start: 20230324, end: 20230630
  12. METHOTREXATE [Concomitant]
     Active Substance: METHOTREXATE
     Indication: Rheumatoid arthritis
     Route: 048
     Dates: start: 20230701, end: 20231004
  13. METHOTREXATE [Concomitant]
     Active Substance: METHOTREXATE
     Indication: Rheumatoid arthritis
     Route: 048
     Dates: start: 20231201
  14. METHOTREXATE [Concomitant]
     Active Substance: METHOTREXATE
     Indication: Rheumatoid arthritis
     Route: 048
     Dates: end: 20230323
  15. SARS-CoV-2 vaccine [Concomitant]
     Indication: COVID-19 prophylaxis
     Dates: start: 20231031, end: 20231031
  16. SARS-CoV-2 vaccine [Concomitant]
     Indication: COVID-19 prophylaxis
     Dates: start: 20210701, end: 20210701
  17. SARS-CoV-2 vaccine [Concomitant]
     Indication: COVID-19 prophylaxis
     Dates: start: 20210530, end: 20210530
  18. QUETIAPINE [Concomitant]
     Active Substance: QUETIAPINE
     Indication: Sleep disorder
     Dosage: 10 MILLIGRAM
     Route: 048
  19. CEFTRIAXONE [Concomitant]
     Active Substance: CEFTRIAXONE\CEFTRIAXONE SODIUM
     Indication: Parainfluenzae virus infection
     Dosage: 2 GRAM
     Route: 042
     Dates: start: 20220622, end: 20220623
  20. OFLOXACIN [Concomitant]
     Active Substance: OFLOXACIN
     Indication: Ophthalmic herpes zoster
     Dosage: TIME INTERVAL: 0.33333333 DAYS
     Route: 031
     Dates: start: 20220725, end: 20220810
  21. METHYLPREDNISOLONE [Concomitant]
     Active Substance: METHYLPREDNISOLONE
     Indication: Rheumatoid arthritis
     Dosage: 4 MILLIGRAM
     Route: 048
     Dates: start: 202110
  22. AMOXICILLIN [Concomitant]
     Active Substance: AMOXICILLIN
     Indication: Bronchitis
     Dosage: TIME INTERVAL: 0.33333333 DAYS
     Route: 048
     Dates: start: 20230101, end: 20230107
  23. INFLUENZA VIRUS VACCINE [Concomitant]
     Active Substance: INFLUENZA VIRUS VACCINE
     Indication: Antiviral prophylaxis
     Dates: start: 20211208, end: 20211208
  24. DEXAMETHASONE SODIUM PHOSPHATE [Concomitant]
     Active Substance: DEXAMETHASONE PHOSPHATE\DEXAMETHASONE SODIUM PHOSPHATE
     Indication: Ophthalmic herpes zoster
     Dates: start: 20220725, end: 20230630
  25. ACYCLOVIR [Concomitant]
     Active Substance: ACYCLOVIR
     Indication: Ophthalmic herpes zoster
     Route: 048
     Dates: start: 20220725
  26. GANCICLOVIR [Concomitant]
     Active Substance: GANCICLOVIR
     Indication: Ophthalmic herpes zoster
     Dosage: 1 APPLICATION
     Route: 031
     Dates: start: 20220725, end: 20220810
  27. CYCLOGYL [Concomitant]
     Active Substance: CYCLOPENTOLATE HYDROCHLORIDE
     Indication: Ophthalmic herpes zoster
     Route: 031
     Dates: start: 20220725, end: 20220810

REACTIONS (1)
  - Gastric banding [Recovered/Resolved]

NARRATIVE: CASE EVENT DATE: 20230915
